FAERS Safety Report 6001302-8 (Version None)
Quarter: 2008Q4

REPORT INFORMATION
  Report Type: 
  Country: None (occurrence: None)
  Receive Date: 20081215
  Receipt Date: 20081209
  Transmission Date: 20090506
  Serious: Yes (Other)
  Sender: FDA-Public Use
  Company Number: PHHY2008BR27814

PATIENT
  Sex: Male

DRUGS (1)
  1. DIOVAN [Suspect]
     Indication: HYPERTENSION
     Dosage: 1/2 TABLET (320 MG) PER DAY
     Route: 048
     Dates: start: 20080901

REACTIONS (2)
  - INFECTION [None]
  - PURPURA [None]
